FAERS Safety Report 20265598 (Version 1)
Quarter: 2021Q4

REPORT INFORMATION
  Report Type: Spontaneous
  Country: FR (occurrence: FR)
  Receive Date: 20211231
  Receipt Date: 20211231
  Transmission Date: 20220303
  Serious: Yes (Other)
  Sender: FDA-Public Use
  Company Number: None

PATIENT
  Age: 82 Year
  Sex: Male
  Weight: 62.5 kg

DRUGS (3)
  1. LEVOFLOXACIN [Suspect]
     Active Substance: LEVOFLOXACIN
     Indication: Sepsis
     Dosage: 1000 MG, QD(500 MG X2/JOUR)
     Route: 048
     Dates: start: 20210618, end: 20210624
  2. DOXYCYCLINE [Suspect]
     Active Substance: DOXYCYCLINE
     Indication: Sepsis
     Dosage: 200 MG, QD(100 MG X2/JOUR)
     Route: 048
     Dates: start: 20210718, end: 20210724
  3. AVIBACTAM SODIUM\CEFTAZIDIME [Suspect]
     Active Substance: AVIBACTAM SODIUM\CEFTAZIDIME
     Indication: Sepsis
     Dosage: 6 G, QD(2G X3/J)
     Route: 042
     Dates: start: 20210708, end: 20210722

REACTIONS (2)
  - Aphasia [Recovered/Resolved]
  - Hepatocellular injury [Recovering/Resolving]

NARRATIVE: CASE EVENT DATE: 20210624
